FAERS Safety Report 5381982-0 (Version None)
Quarter: 2007Q3

REPORT INFORMATION
  Report Type: 
  Country: None (occurrence: None)
  Receive Date: 20070709
  Receipt Date: 20070704
  Transmission Date: 20080115
  Serious: Yes (Hospitalization, Other)
  Sender: FDA-Public Use
  Company Number: B0470086A

PATIENT
  Age: 58 Year
  Sex: Male
  Weight: 76 kg

DRUGS (3)
  1. AVANDAMET [Suspect]
     Route: 048
     Dates: start: 20070123, end: 20070507
  2. METFORMINE [Concomitant]
  3. DIAMICRON [Concomitant]
     Dates: start: 20070123, end: 20070507

REACTIONS (2)
  - ACUTE CORONARY SYNDROME [None]
  - METABOLIC DISORDER [None]
